FAERS Safety Report 11110250 (Version 1)
Quarter: 2015Q2

REPORT INFORMATION
  Report Type: Spontaneous
  Country: CN (occurrence: CN)
  Receive Date: 20150513
  Receipt Date: 20150513
  Transmission Date: 20150821
  Serious: Yes (Hospitalization, Other)
  Sender: FDA-Public Use
  Company Number: CN-GLAXOSMITHKLINE-CN2015GSK064275

PATIENT
  Age: 57 Year
  Sex: Male

DRUGS (2)
  1. LAMOTRIGINE. [Suspect]
     Active Substance: LAMOTRIGINE
     Indication: BIPOLAR DISORDER
  2. VALPROATE SODIUM. [Concomitant]
     Active Substance: VALPROATE SODIUM
     Indication: BIPOLAR DISORDER

REACTIONS (7)
  - Lymphadenopathy [Unknown]
  - Stevens-Johnson syndrome [Unknown]
  - Death [Unknown]
  - Condition aggravated [Unknown]
  - Haematuria [Unknown]
  - Dysphagia [Unknown]
  - Pyrexia [Unknown]
